FAERS Safety Report 6733611-9 (Version None)
Quarter: 2010Q2

REPORT INFORMATION
  Report Type: 
  Country: None (occurrence: None)
  Receive Date: 20100520
  Receipt Date: 20100511
  Transmission Date: 20101027
  Serious: Yes (Death)
  Sender: FDA-Public Use
  Company Number: CN-SANOFI-AVENTIS-2010SA026959

PATIENT
  Age: 82 Year
  Sex: Male

DRUGS (4)
  1. NATRILIX - SLOW RELEASE [Suspect]
     Indication: CARDIAC FAILURE
     Route: 048
     Dates: start: 20091001, end: 20091001
  2. BENAZEPRIL HYDROCHLORIDE [Concomitant]
     Indication: DRUG USE FOR UNKNOWN INDICATION
     Dates: end: 20091001
  3. ASPIRIN [Concomitant]
     Indication: DRUG USE FOR UNKNOWN INDICATION
     Dates: end: 20091001
  4. ISOSORBIDE MONONITRATE [Concomitant]
     Indication: DRUG USE FOR UNKNOWN INDICATION
     Dates: end: 20091001

REACTIONS (2)
  - HYPOKALAEMIA [None]
  - SUDDEN CARDIAC DEATH [None]
